FAERS Safety Report 8377083-X (Version None)
Quarter: 2012Q2

REPORT INFORMATION
  Report Type: 
  Country: None (occurrence: None)
  Receive Date: 20120522
  Receipt Date: 20120510
  Transmission Date: 20120825
  Serious: Yes (Hospitalization)
  Sender: FDA-Public Use
  Company Number: JP-ELI_LILLY_AND_COMPANY-JP201205004321

PATIENT
  Age: 75 Year
  Sex: Female

DRUGS (2)
  1. ZOLPIDEM [Concomitant]
     Dosage: UNK
     Route: 048
  2. FORTEO [Suspect]
     Dosage: UNK UNK, QD
     Route: 058

REACTIONS (1)
  - FRACTURE [None]
